FAERS Safety Report 14337840 (Version 2)
Quarter: 2018Q1

REPORT INFORMATION
  Report Type: Report from Study
  Country: JP (occurrence: JP)
  Receive Date: 20171229
  Receipt Date: 20180330
  Transmission Date: 20180509
  Serious: Yes (Death, Other)
  Sender: FDA-Public Use
  Company Number: JP-CELGENEUS-JPN-20171210592

PATIENT
  Age: 73 Year
  Sex: Male

DRUGS (19)
  1. POTELIGEO [Concomitant]
     Active Substance: MOGAMULIZUMAB
     Indication: ADULT T-CELL LYMPHOMA/LEUKAEMIA
     Dosage: 63 MILLIGRAM
     Route: 041
     Dates: start: 20170327, end: 20170714
  2. DOXORUBICIN [Concomitant]
     Active Substance: DOXORUBICIN
     Indication: ADULT T-CELL LYMPHOMA/LEUKAEMIA
     Dosage: 70 MILLIGRAM
     Route: 041
     Dates: start: 20170328, end: 20170328
  3. DEXART [Concomitant]
     Active Substance: DEXAMETHASONE SODIUM PHOSPHATE
     Dosage: 2 MILLILITER
     Route: 041
     Dates: start: 20170327, end: 20170912
  4. OLOPATADINE. [Concomitant]
     Active Substance: OLOPATADINE
     Indication: PROPHYLAXIS
     Dosage: UNKNOWN
     Route: 048
  5. RANIMUSTINE [Concomitant]
     Active Substance: RANIMUSTINE
     Indication: ADULT T-CELL LYMPHOMA/LEUKAEMIA
     Dosage: UNKNOWN
     Route: 065
  6. PREDONINE [Concomitant]
     Active Substance: PREDNISOLONE
     Indication: ADULT T-CELL LYMPHOMA/LEUKAEMIA
     Dosage: 100 MILLIGRAM
     Route: 041
     Dates: start: 20170816, end: 20170918
  7. RABEPRAZOLE [Concomitant]
     Active Substance: RABEPRAZOLE
     Indication: PROPHYLAXIS
     Dosage: UNKNOWN
     Route: 048
  8. CYCLOPHOSPHAMIDE. [Concomitant]
     Active Substance: CYCLOPHOSPHAMIDE
     Indication: ADULT T-CELL LYMPHOMA/LEUKAEMIA
     Dosage: UNKNOWN
     Route: 065
  9. VINDESINE [Concomitant]
     Active Substance: VINDESINE
     Indication: ADULT T-CELL LYMPHOMA/LEUKAEMIA
     Dosage: UNKNOWN
     Route: 065
  10. REVLIMID [Suspect]
     Active Substance: LENALIDOMIDE
     Indication: ADULT T-CELL LYMPHOMA/LEUKAEMIA
     Dosage: 25 MILLIGRAM
     Route: 048
     Dates: start: 20170703, end: 20170911
  11. ONCOVIN [Concomitant]
     Active Substance: VINCRISTINE SULFATE
     Indication: ADULT T-CELL LYMPHOMA/LEUKAEMIA
     Dosage: .6 MILLIGRAM
     Route: 041
     Dates: start: 20170328, end: 20170916
  12. DOXORUBICIN [Concomitant]
     Active Substance: DOXORUBICIN
     Dosage: 35 MILLIGRAM
     Route: 041
     Dates: start: 20170524, end: 20170531
  13. XYZAL [Concomitant]
     Active Substance: LEVOCETIRIZINE DIHYDROCHLORIDE
     Indication: PROPHYLAXIS
     Dosage: UNKNOWN
     Route: 048
  14. REVLIMID [Suspect]
     Active Substance: LENALIDOMIDE
     Dosage: 25 MILLIGRAM
     Route: 048
     Dates: start: 20170919, end: 20171002
  15. POTELIGEO [Concomitant]
     Active Substance: MOGAMULIZUMAB
     Dosage: 55 MILLIGRAM
     Route: 041
     Dates: start: 20170721, end: 20170912
  16. DEXART [Concomitant]
     Active Substance: DEXAMETHASONE SODIUM PHOSPHATE
     Indication: ADULT T-CELL LYMPHOMA/LEUKAEMIA
     Dosage: 10 MILLILITER
     Route: 041
     Dates: start: 20170323, end: 20170326
  17. ETOPOSIDE. [Concomitant]
     Active Substance: ETOPOSIDE
     Indication: ADULT T-CELL LYMPHOMA/LEUKAEMIA
     Dosage: 80 MILLIGRAM
     Route: 041
     Dates: start: 20170502, end: 20170916
  18. DOXORUBICIN [Concomitant]
     Active Substance: DOXORUBICIN
     Dosage: 40 MILLIGRAM
     Route: 041
     Dates: start: 20170404, end: 20170404
  19. CARBOPLATIN. [Concomitant]
     Active Substance: CARBOPLATIN
     Indication: ADULT T-CELL LYMPHOMA/LEUKAEMIA
     Dosage: UNKNOWN
     Route: 065

REACTIONS (2)
  - Delirium [Not Recovered/Not Resolved]
  - Adult T-cell lymphoma/leukaemia [Fatal]

NARRATIVE: CASE EVENT DATE: 20170911
